FAERS Safety Report 7212298-5 (Version None)
Quarter: 2011Q1

REPORT INFORMATION
  Report Type: 
  Country: None (occurrence: None)
  Receive Date: 20110106
  Receipt Date: 20101228
  Transmission Date: 20110831
  Serious: Yes (Other)
  Sender: FDA-Public Use
  Company Number: PHHY2010US88891

PATIENT
  Sex: Male
  Weight: 31 kg

DRUGS (1)
  1. EXJADE [Suspect]
     Dosage: 250 MG, QD
     Route: 048
     Dates: start: 20100401, end: 20101101

REACTIONS (1)
  - STEM CELL TRANSPLANT [None]
